FAERS Safety Report 21923624 (Version 2)
Quarter: 2023Q1

REPORT INFORMATION
  Report Type: Spontaneous
  Country: FR (occurrence: FR)
  Receive Date: 20230130
  Receipt Date: 20230306
  Transmission Date: 20230418
  Serious: Yes (Hospitalization, Other)
  Sender: FDA-Public Use
  Company Number: FR-PFIZER INC-2020376440

PATIENT
  Age: 84 Year
  Sex: Female
  Weight: 87 kg

DRUGS (3)
  1. LETROZOLE [Suspect]
     Active Substance: LETROZOLE
     Indication: Product used for unknown indication
     Dosage: UNK
     Route: 065
  2. IBRANCE [Suspect]
     Active Substance: PALBOCICLIB
     Indication: Breast cancer
     Dosage: 125 MILLIGRAM, CYCLICAL (21 DAYS OUT OF 28)
     Route: 065
     Dates: start: 20190618, end: 20191203
  3. IBRANCE [Suspect]
     Active Substance: PALBOCICLIB
     Dosage: UNK
     Route: 065

REACTIONS (7)
  - Osteoarthritis [Recovered/Resolved with Sequelae]
  - Neutropenia [Recovering/Resolving]
  - Renal impairment [Recovered/Resolved]
  - Palmar-plantar erythrodysaesthesia syndrome [Recovered/Resolved]
  - Mucosal inflammation [Recovered/Resolved]
  - Epistaxis [Recovered/Resolved]
  - Alopecia [Recovering/Resolving]

NARRATIVE: CASE EVENT DATE: 20190712
